FAERS Safety Report 9017013 (Version 1)
Quarter: 2013Q1

REPORT INFORMATION
  Report Type: Spontaneous
  Country: IL (occurrence: IL)
  Receive Date: 20130117
  Receipt Date: 20130117
  Transmission Date: 20140127
  Serious: Yes (Other)
  Sender: FDA-Public Use
  Company Number: IL-COVIDIEN/TYCO HEALTHCARE/MALLINCKRODT-T201300048

PATIENT
  Age: 15 Year
  Sex: Female

DRUGS (2)
  1. SODIUM IODIDE (I 131) [Suspect]
     Indication: BASEDOW^S DISEASE
     Dosage: 20 MCI, SINGLE
  2. SODIUM IODIDE (I 131) [Suspect]
     Dosage: 20 MCI, SINGLE

REACTIONS (2)
  - Post procedural hypothyroidism [Unknown]
  - Treatment failure [Recovered/Resolved]
